FAERS Safety Report 9363091 (Version 1)
Quarter: 2013Q2

REPORT INFORMATION
  Report Type: Spontaneous
  Country: US (occurrence: US)
  Receive Date: 20130624
  Receipt Date: 20130624
  Transmission Date: 20140414
  Serious: No
  Sender: FDA-Public Use
  Company Number: US-PFIZER INC-2013185569

PATIENT
  Age: 18 Year
  Sex: Female

DRUGS (1)
  1. ADVIL [Suspect]
     Indication: HEADACHE
     Dosage: 2 TABLET, UNK
     Route: 048
     Dates: start: 20130618, end: 20130618

REACTIONS (2)
  - Dyspnoea [Not Recovered/Not Resolved]
  - Influenza [Unknown]
